FAERS Safety Report 25312782 (Version 1)
Quarter: 2025Q2

REPORT INFORMATION
  Report Type: Spontaneous
  Country: US (occurrence: None)
  Receive Date: 20250513
  Receipt Date: 20250513
  Transmission Date: 20250716
  Serious: Yes (Life-Threatening)
  Sender: FDA-CTU
  Company Number: None

PATIENT
  Age: 62 Year
  Sex: Male
  Weight: 83 kg

DRUGS (2)
  1. FENTANYL [Suspect]
     Active Substance: FENTANYL
     Indication: Cancer pain
     Route: 061
     Dates: start: 20250307, end: 20250309
  2. FENTANYL [Suspect]
     Active Substance: FENTANYL
     Indication: Pain

REACTIONS (7)
  - Fall [None]
  - Tremor [None]
  - Loss of consciousness [None]
  - Accidental overdose [None]
  - Hypotension [None]
  - Hypoglycaemia [None]
  - Bradycardia [None]

NARRATIVE: CASE EVENT DATE: 20250309
